FAERS Safety Report 9384855 (Version 1)
Quarter: 2013Q3

REPORT INFORMATION
  Report Type: Spontaneous
  Country: JP (occurrence: JP)
  Receive Date: 20130705
  Receipt Date: 20130705
  Transmission Date: 20140515
  Serious: Yes (Hospitalization, Other)
  Sender: FDA-Public Use
  Company Number: JP-PFIZER INC-2013196961

PATIENT
  Age: 82 Year
  Sex: Female

DRUGS (5)
  1. METHYLPREDNISOLONE SODIUM SUCCINATE [Suspect]
     Indication: MICROSCOPIC POLYANGIITIS
     Dosage: 500 MG/DAY
     Route: 042
  2. PREDNISOLONE [Suspect]
     Indication: MICROSCOPIC POLYANGIITIS
     Dosage: 20 MG/DAY
     Route: 048
  3. PREDNISOLONE [Suspect]
     Dosage: 15 MG DAILY
     Route: 048
  4. PREDNISOLONE [Suspect]
     Dosage: 5 MG DAILY
     Route: 048
  5. PREDNISOLONE [Suspect]
     Dosage: 3 MG DAILY
     Route: 048

REACTIONS (1)
  - Acute hepatitis B [Recovered/Resolved]
